FAERS Safety Report 6885160-5 (Version None)
Quarter: 2010Q3

REPORT INFORMATION
  Report Type: 
  Country: None (occurrence: None)
  Receive Date: 20100729
  Receipt Date: 20071228
  Transmission Date: 20110219
  Serious: Yes (Other)
  Sender: FDA-Public Use
  Company Number: US-PFIZER INC-2007101327

PATIENT
  Sex: Female
  Weight: 59.4 kg

DRUGS (2)
  1. CELEBREX [Suspect]
     Indication: ARTHRALGIA
     Route: 048
     Dates: start: 20071124
  2. AMBIEN [Concomitant]
     Indication: INSOMNIA
     Dosage: AS NEEDED AT BEDTIME
     Route: 048
     Dates: start: 20071121, end: 20071124

REACTIONS (1)
  - ANAPHYLACTIC REACTION [None]
